FAERS Safety Report 7345512-6 (Version None)
Quarter: 2011Q1

REPORT INFORMATION
  Report Type: 
  Country: None (occurrence: None)
  Receive Date: 20110310
  Receipt Date: 20110302
  Transmission Date: 20110831
  Serious: Yes (Hospitalization)
  Sender: FDA-Public Use
  Company Number: US-B.I. PHARMACEUTICALS,INC./RIDGEFIELD-2011-BP-02056BP

PATIENT
  Age: 73 Year
  Sex: Female
  Weight: 60.59 kg

DRUGS (2)
  1. COUMADIN [Suspect]
  2. PRADAXA [Suspect]
     Dosage: 300 MG
     Dates: start: 20101220, end: 20101223

REACTIONS (6)
  - RECTAL HAEMORRHAGE [None]
  - LOWER GASTROINTESTINAL HAEMORRHAGE [None]
  - PRESYNCOPE [None]
  - ASTHENIA [None]
  - DYSCHEZIA [None]
  - DECREASED APPETITE [None]
